FAERS Safety Report 8085806-2 (Version None)
Quarter: 2012Q1

REPORT INFORMATION
  Report Type: 
  Country: None (occurrence: None)
  Receive Date: 20120128
  Receipt Date: 20110608
  Transmission Date: 20120608
  Serious: No
  Sender: FDA-Public Use
  Company Number: US-ABBOTT-11P-163-0731319-00

PATIENT
  Sex: Female
  Weight: 56.75 kg

DRUGS (5)
  1. MERCAPTOPURINE [Concomitant]
     Indication: CROHN'S DISEASE
  2. HUMIRA [Suspect]
     Route: 058
     Dates: start: 20040101, end: 20040101
  3. VITAMIN D [Concomitant]
     Indication: BONE DISORDER
  4. FOSAMAX [Concomitant]
     Indication: BONE DISORDER
  5. HUMIRA [Suspect]
     Indication: CROHN'S DISEASE
     Route: 058
     Dates: start: 20040101

REACTIONS (6)
  - INJECTION SITE PAIN [None]
  - DRUG DOSE OMISSION [None]
  - ASTHENIA [None]
  - NAUSEA [None]
  - DIZZINESS [None]
  - DRUG EFFECT DECREASED [None]
